FAERS Safety Report 9848287 (Version 4)
Quarter: 2014Q2

REPORT INFORMATION
  Report Type: Spontaneous
  Country: JP (occurrence: JP)
  Receive Date: 20140128
  Receipt Date: 20140526
  Transmission Date: 20141212
  Serious: Yes (Hospitalization)
  Sender: FDA-Public Use
  Company Number: PHHY2014JP009099

PATIENT
  Sex: Female
  Weight: 39 kg

DRUGS (9)
  1. ZOMETA [Suspect]
     Indication: PLASMA CELL MYELOMA
     Dosage: 4 MG, UNK
     Route: 041
     Dates: start: 20080304, end: 20101012
  2. DEXAMETHASONE SODIUM PHOSPHATE [Suspect]
     Indication: PLASMA CELL MYELOMA
     Dosage: UNK
     Route: 042
     Dates: start: 20070625, end: 20071113
  3. DEXAMETHASONE SODIUM PHOSPHATE [Suspect]
     Dosage: UNK
     Route: 042
     Dates: start: 201011, end: 201101
  4. VINDESINE SULFATE [Concomitant]
     Indication: PLASMA CELL MYELOMA
     Dosage: UNK
     Route: 042
     Dates: start: 20070418, end: 20070621
  5. RANIMUSTINE [Concomitant]
     Indication: PLASMA CELL MYELOMA
     Dosage: UNK
     Route: 042
     Dates: start: 20070418, end: 20070621
  6. PREDONINE//PREDNISOLONE ACETATE [Concomitant]
     Indication: PLASMA CELL MYELOMA
     Dosage: UNK
     Route: 042
     Dates: start: 20070417, end: 20070621
  7. VINCRISTINE SULFATE [Concomitant]
     Indication: PLASMA CELL MYELOMA
     Dosage: UNK
     Route: 042
     Dates: start: 20070625, end: 20071113
  8. DOXORUBICIN HYDROCHLORIDE [Concomitant]
     Indication: PLASMA CELL MYELOMA
     Dosage: UNK
     Route: 042
     Dates: start: 20070625, end: 20071113
  9. VELCADE [Concomitant]
     Indication: PLASMA CELL MYELOMA
     Dosage: UNK
     Dates: start: 201011, end: 201101

REACTIONS (12)
  - Osteonecrosis of jaw [Recovering/Resolving]
  - Periodontitis [Recovering/Resolving]
  - Tooth loss [Recovering/Resolving]
  - Toothache [Recovering/Resolving]
  - Primary sequestrum [Recovering/Resolving]
  - Erythema [Unknown]
  - Swelling [Unknown]
  - Gingivitis [Unknown]
  - Pain [Unknown]
  - Fistula [Unknown]
  - Loose tooth [Recovering/Resolving]
  - Osteomyelitis [Recovering/Resolving]
